FAERS Safety Report 21096446 (Version 1)
Quarter: 2022Q3

REPORT INFORMATION
  Report Type: Spontaneous
  Country: US (occurrence: US)
  Receive Date: 20220718
  Receipt Date: 20220718
  Transmission Date: 20221026
  Serious: No
  Sender: FDA-Public Use
  Company Number: US-Blueprint Medicines Corporation-SP-US-2022-002212

PATIENT
  Sex: Male

DRUGS (2)
  1. AYVAKIT [Suspect]
     Active Substance: AVAPRITINIB
     Indication: Systemic mastocytosis
     Dosage: TAKE 1 TABLET BY MOUTH ON TUESDAY, THURSDAY, SATURDAY AND SUNDAYS ON AN EMPTY STOMACH
     Route: 048
     Dates: start: 20160901
  2. AYVAKIT [Suspect]
     Active Substance: AVAPRITINIB
     Dosage: TAKE 1 TABLET BY MOUTH ON MONDAY WEDNESDAY AND FRIDAYS ON EMPTY STOMACH
     Route: 048
     Dates: start: 20160901

REACTIONS (3)
  - Insomnia [Not Recovered/Not Resolved]
  - Fatigue [Not Recovered/Not Resolved]
  - Off label use [Unknown]
